FAERS Safety Report 18935091 (Version 1)
Quarter: 2021Q1

REPORT INFORMATION
  Report Type: Spontaneous
  Country: US (occurrence: US)
  Receive Date: 20210224
  Receipt Date: 20210224
  Transmission Date: 20210420
  Serious: Yes (Other)
  Sender: FDA-Public Use
  Company Number: US-TERSERA THERAPEUTICS LLC-2020TRS002259

PATIENT

DRUGS (8)
  1. DILAUDID [Suspect]
     Active Substance: HYDROMORPHONE HYDROCHLORIDE
     Indication: POST LAMINECTOMY SYNDROME
  2. PRIALT [Suspect]
     Active Substance: ZICONOTIDE ACETATE
     Indication: PAIN
  3. PRIALT [Suspect]
     Active Substance: ZICONOTIDE ACETATE
     Indication: SPINAL OSTEOARTHRITIS
     Dosage: 11 MCG, QD
     Route: 037
     Dates: end: 20200727
  4. BUPIVACAINE. [Suspect]
     Active Substance: BUPIVACAINE
     Indication: POST LAMINECTOMY SYNDROME
  5. PRIALT [Suspect]
     Active Substance: ZICONOTIDE ACETATE
     Indication: RADICULOPATHY
  6. PRIALT [Suspect]
     Active Substance: ZICONOTIDE ACETATE
     Indication: POST LAMINECTOMY SYNDROME
  7. BUPIVACAINE. [Suspect]
     Active Substance: BUPIVACAINE
     Indication: PAIN
     Dosage: 37 MG, QD
     Route: 037
  8. DILAUDID [Suspect]
     Active Substance: HYDROMORPHONE HYDROCHLORIDE
     Indication: PAIN
     Dosage: 4 MG, QD
     Route: 037

REACTIONS (11)
  - Off label use [Unknown]
  - Decreased appetite [Not Recovered/Not Resolved]
  - Taste disorder [Not Recovered/Not Resolved]
  - Peripheral coldness [Not Recovered/Not Resolved]
  - Dizziness [Not Recovered/Not Resolved]
  - Hallucination, auditory [Not Recovered/Not Resolved]
  - Tinnitus [Not Recovered/Not Resolved]
  - Influenza like illness [Unknown]
  - Nausea [Not Recovered/Not Resolved]
  - Ill-defined disorder [Unknown]
  - Parosmia [Not Recovered/Not Resolved]

NARRATIVE: CASE EVENT DATE: 202007
